FAERS Safety Report 4946989-3 (Version None)
Quarter: 2006Q1

REPORT INFORMATION
  Report Type: 
  Country: None (occurrence: None)
  Receive Date: 20060317
  Receipt Date: 20051126
  Transmission Date: 20060701
  Serious: Yes (Hospitalization)
  Sender: FDA-Public Use
  Company Number: US-ROCHE-426508

PATIENT
  Age: 44 Year
  Sex: Male
  Weight: 89.8 kg

DRUGS (6)
  1. PEGASYS [Suspect]
     Route: 058
     Dates: start: 20051007, end: 20051129
  2. PEGASYS [Suspect]
     Route: 058
     Dates: start: 20060217
  3. COPEGUS [Suspect]
     Route: 048
     Dates: start: 20051007, end: 20051129
  4. COPEGUS [Suspect]
     Route: 048
     Dates: start: 20060217
  5. EFFEXOR [Concomitant]
     Indication: PROPHYLAXIS
     Route: 048
  6. CELEBREX [Concomitant]
     Dosage: REPORTED AS CELEBRAX. DOSING: 200 QD.
     Route: 048

REACTIONS (5)
  - ABDOMINAL PAIN [None]
  - BACK PAIN [None]
  - CHEST PAIN [None]
  - DEHYDRATION [None]
  - PNEUMONIA [None]
